FAERS Safety Report 12546205 (Version 3)
Quarter: 2019Q3

REPORT INFORMATION
  Report Type: Spontaneous
  Country: US (occurrence: US)
  Receive Date: 20160711
  Receipt Date: 20190722
  Transmission Date: 20191004
  Serious: No
  Sender: FDA-Public Use
  Company Number: US-B.I. PHARMACEUTICALS,INC./RIDGEFIELD-2016-BI-42121BP

PATIENT
  Sex: Female

DRUGS (1)
  1. SPIRIVA [Suspect]
     Active Substance: TIOTROPIUM BROMIDE MONOHYDRATE
     Indication: PRODUCT USED FOR UNKNOWN INDICATION
     Route: 055

REACTIONS (6)
  - Sinusitis [Unknown]
  - Overdose [Recovered/Resolved]
  - Osteoporosis [Unknown]
  - Product use issue [Unknown]
  - Choking [Unknown]
  - Vision blurred [Unknown]

NARRATIVE: CASE EVENT DATE: 201906
